FAERS Safety Report 15001824 (Version 2)
Quarter: 2018Q3

REPORT INFORMATION
  Report Type: Spontaneous
  Country: JP (occurrence: JP)
  Receive Date: 20180612
  Receipt Date: 20180705
  Transmission Date: 20181010
  Serious: Yes (Hospitalization, Other)
  Sender: FDA-Public Use
  Company Number: JP-GILEAD-2018-0343745

PATIENT
  Age: 75 Year
  Sex: Female

DRUGS (1)
  1. VEMLIDY [Suspect]
     Active Substance: TENOFOVIR ALAFENAMIDE FUMARATE
     Indication: HEPATITIS B
     Dosage: 25 MG, UNK
     Route: 048
     Dates: start: 20180611

REACTIONS (2)
  - Hepatic cancer metastatic [Not Recovered/Not Resolved]
  - Metastases to bone [Not Recovered/Not Resolved]
